FAERS Safety Report 6034622-1 (Version None)
Quarter: 2009Q1

REPORT INFORMATION
  Report Type: 
  Country: None (occurrence: None)
  Receive Date: 20090109
  Receipt Date: 20090109
  Transmission Date: 20090719
  Serious: Yes (Death)
  Sender: FDA-Public Use
  Company Number: None

PATIENT
  Age: 81 Year
  Sex: Female
  Weight: 50.8029 kg

DRUGS (1)
  1. FOSAMAX [Suspect]
     Indication: OSTEOPOROSIS
     Dosage: ONE PILL A WEEK
     Dates: start: 19950515, end: 20050801

REACTIONS (2)
  - OESOPHAGEAL CARCINOMA [None]
  - OESOPHAGEAL ULCER [None]
